FAERS Safety Report 10441884 (Version 2)
Quarter: 2014Q4

REPORT INFORMATION
  Report Type: Spontaneous
  Country: PT (occurrence: PT)
  Receive Date: 20140909
  Receipt Date: 20141107
  Transmission Date: 20150528
  Serious: Yes (Other)
  Sender: FDA-Public Use
  Company Number: PT-ASTRAZENECA-2014SE67097

PATIENT
  Sex: Female

DRUGS (3)
  1. SYMBICORT [Suspect]
     Active Substance: BUDESONIDE\FORMOTEROL FUMARATE DIHYDRATE
     Dosage: 160 MCG/4.5 MCG/DOSE, ONE INHALATION IN THE MORNING AND ONE AT NIGHT
     Route: 055
  2. SYMBICORT [Suspect]
     Active Substance: BUDESONIDE\FORMOTEROL FUMARATE DIHYDRATE
     Dosage: 160 MCG/4.5 MCG/DOSE, UNKNOWN FREQUENCY
     Route: 055
     Dates: start: 2014
  3. NASOMET [Concomitant]
     Active Substance: MOMETASONE FUROATE

REACTIONS (6)
  - Dyspnoea [Recovered/Resolved]
  - Off label use [Recovered/Resolved]
  - Intentional product misuse [Recovered/Resolved]
  - Hypersensitivity [Recovered/Resolved]
  - Asthmatic crisis [Recovered/Resolved]
  - Urticaria [Unknown]
